FAERS Safety Report 9240263 (Version 1)
Quarter: 2013Q1

REPORT INFORMATION
  Report Type: Spontaneous
  Country: US (occurrence: None)
  Receive Date: 20121119
  Receipt Date: 20121119
  Transmission Date: 20140127
  Serious: Yes (Hospitalization)
  Sender: FDA-Public Use
  Company Number: 069188

PATIENT
  Age: 55 Year
  Sex: Female
  Weight: 82.9 kg

DRUGS (5)
  1. LACOSAMIDE [Suspect]
     Indication: EPILEPSY
     Route: 048
     Dates: start: 20121004, end: 20121004
  2. LACOSAMIDE [Suspect]
     Indication: EPILEPSY
     Dates: start: 20121004, end: 20121004
  3. CARBAMAZEPINE [Concomitant]
  4. TOPIRAMATE [Concomitant]
  5. LEVAQUIN [Concomitant]

REACTIONS (1)
  - Confusional state [None]
